FAERS Safety Report 23724837 (Version 1)
Quarter: 2024Q2

REPORT INFORMATION
  Report Type: Spontaneous
  Country: NL (occurrence: NL)
  Receive Date: 20240409
  Receipt Date: 20240409
  Transmission Date: 20240716
  Serious: Yes (Disabling, Other)
  Sender: FDA-Public Use
  Company Number: None

PATIENT
  Age: 32 Year
  Weight: 65 kg

DRUGS (4)
  1. CITALOPRAM [Suspect]
     Active Substance: CITALOPRAM\CITALOPRAM HYDROBROMIDE
     Indication: Post-acute COVID-19 syndrome
     Dosage: DOSE REDUCED TO 5MG
     Route: 065
  2. CITALOPRAM [Suspect]
     Active Substance: CITALOPRAM\CITALOPRAM HYDROBROMIDE
     Indication: Post-acute COVID-19 syndrome
     Dosage: DURING USE 20 MG
     Route: 065
     Dates: start: 20230214
  3. ATENOLOL [Concomitant]
     Active Substance: ATENOLOL
     Indication: Product used for unknown indication
     Dosage: TABLET, 25 MG (MILLIGRAM)
     Route: 065
  4. ETHINYL ESTRADIOL\LEVONORGESTREL [Concomitant]
     Active Substance: ETHINYL ESTRADIOL\LEVONORGESTREL
     Indication: Product used for unknown indication
     Dosage: TABLET, 30/150 ?G (MICROGRAM)
     Route: 065

REACTIONS (11)
  - Malaise [Not Recovered/Not Resolved]
  - Tension [Unknown]
  - Product use in unapproved indication [Unknown]
  - Anhedonia [Recovered/Resolved]
  - Electric shock sensation [Recovering/Resolving]
  - Underdose [Unknown]
  - Hypervigilance [Unknown]
  - Wrong technique in product usage process [Unknown]
  - Flashback [Unknown]
  - Suicidal ideation [Recovered/Resolved]
  - Withdrawal syndrome [Unknown]
